FAERS Safety Report 19162179 (Version 3)
Quarter: 2021Q2

REPORT INFORMATION
  Report Type: Spontaneous
  Country: US (occurrence: US)
  Receive Date: 20210421
  Receipt Date: 20210521
  Transmission Date: 20210717
  Serious: Yes (Hospitalization, Other)
  Sender: FDA-Public Use
  Company Number: US-SA-2021SA130213

PATIENT
  Age: 13 Year
  Sex: Male

DRUGS (18)
  1. ARIPIPRAZOLE. [Concomitant]
     Active Substance: ARIPIPRAZOLE
     Dosage: UNK
     Route: 065
  2. BENADRYL ALLERGY [Concomitant]
     Active Substance: DIPHENHYDRAMINE HYDROCHLORIDE
  3. MELATONIN [Concomitant]
     Active Substance: MELATONIN
     Dosage: UNK
     Route: 065
  4. DUPIXENT [Suspect]
     Active Substance: DUPILUMAB
     Indication: DERMATITIS ATOPIC
     Dosage: UNK
     Route: 050
     Dates: start: 202002
  5. TACROLIMUS. [Concomitant]
     Active Substance: TACROLIMUS
     Dosage: UNK
     Route: 065
  6. DOXEPIN HCL [Concomitant]
     Active Substance: DOXEPIN HYDROCHLORIDE
     Dosage: UNK
     Route: 065
  7. BENADRYL ALLERGY [CETIRIZINE HYDROCHLORIDE] [Concomitant]
     Active Substance: CETIRIZINE HYDROCHLORIDE
     Dosage: UNK
     Route: 065
  8. DOXYCYCLINE MONOHYDRATE [Concomitant]
     Active Substance: DOXYCYCLINE
     Dosage: UNK
     Route: 065
  9. OMEPRAZOLE. [Concomitant]
     Active Substance: OMEPRAZOLE
     Dosage: UNK
     Route: 065
  10. NEPAFENAC;PREDNISOLONE [Concomitant]
     Dosage: UNK
     Route: 065
  11. TYLENOL [Concomitant]
     Active Substance: ACETAMINOPHEN
     Dosage: UNK
     Route: 065
  12. VITAMIN D [VITAMIN D NOS] [Concomitant]
     Active Substance: VITAMIN D NOS
     Dosage: UNK
     Route: 065
  13. CLONIDINE HCL [Concomitant]
     Active Substance: CLONIDINE HYDROCHLORIDE
     Dosage: UNK
     Route: 065
  14. DUPIXENT [Suspect]
     Active Substance: DUPILUMAB
     Dosage: 200 MG, QOW
     Route: 058
     Dates: start: 2020
  15. ZYRTEC [Concomitant]
     Active Substance: CETIRIZINE HYDROCHLORIDE
     Dosage: UNK
     Route: 065
  16. FLUOXETINE HCL [Concomitant]
     Active Substance: FLUOXETINE HYDROCHLORIDE
     Dosage: UNK
     Route: 065
  17. FLUOROMETHOLONE. [Concomitant]
     Active Substance: FLUOROMETHOLONE
     Dosage: DROPS,SUSPENSION
     Route: 065
  18. VITAMIN D NOS [Concomitant]
     Active Substance: VITAMIN D NOS

REACTIONS (10)
  - Autism spectrum disorder [Unknown]
  - Dry skin [Unknown]
  - Product use in unapproved indication [Unknown]
  - Pruritus [Unknown]
  - Skin haemorrhage [Unknown]
  - Eczema [Unknown]
  - Eye pruritus [Unknown]
  - Product use issue [Unknown]
  - Skin exfoliation [Unknown]
  - Eye inflammation [Unknown]

NARRATIVE: CASE EVENT DATE: 2020
